FAERS Safety Report 26004758 (Version 1)
Quarter: 2025Q4

REPORT INFORMATION
  Report Type: Spontaneous
  Country: EU (occurrence: EU)
  Receive Date: 20251106
  Receipt Date: 20251106
  Transmission Date: 20260117
  Serious: Yes (Hospitalization)
  Sender: TORRENT PHARMA INC.
  Company Number: None

PATIENT
  Sex: Female

DRUGS (1)
  1. DONEPEZIL [Suspect]
     Active Substance: DONEPEZIL
     Indication: Dementia Alzheimer^s type
     Dosage: UNKNOWN
     Route: 065
     Dates: start: 20250916, end: 20250917

REACTIONS (8)
  - Product dispensing error [Unknown]
  - Product dispensing error [Unknown]
  - Accidental overdose [Unknown]
  - Product blister packaging issue [Unknown]
  - Vomiting [Unknown]
  - Apathy [Unknown]
  - Product communication issue [Unknown]
  - Accidental overdose [Unknown]

NARRATIVE: CASE EVENT DATE: 20250901
